FAERS Safety Report 13017107 (Version 1)
Quarter: 2016Q4

REPORT INFORMATION
  Report Type: Spontaneous
  Country: US (occurrence: US)
  Receive Date: 20161212
  Receipt Date: 20161212
  Transmission Date: 20170207
  Serious: No
  Sender: FDA-Public Use
  Company Number: US-BIOGEN-2016BI00325943

PATIENT
  Sex: Male

DRUGS (1)
  1. TECFIDERA [Suspect]
     Active Substance: DIMETHYL FUMARATE
     Indication: MULTIPLE SCLEROSIS
     Route: 065
     Dates: start: 20160906

REACTIONS (6)
  - Asthenia [Unknown]
  - Syncope [Unknown]
  - Delirium [Unknown]
  - Malaise [Unknown]
  - Pain in extremity [Unknown]
  - Hypokinesia [Unknown]
